FAERS Safety Report 20921643 (Version 1)
Quarter: 2022Q2

REPORT INFORMATION
  Report Type: Spontaneous
  Country: US (occurrence: None)
  Receive Date: 20220606
  Receipt Date: 20220606
  Transmission Date: 20220720
  Serious: No
  Sender: FDA-Public Use
  Company Number: US-Eisai Medical Research-EC-2022-115647

PATIENT
  Sex: Female

DRUGS (2)
  1. DAYVIGO [Suspect]
     Active Substance: LEMBOREXANT
     Indication: Insomnia
     Route: 048
  2. DAYVIGO [Suspect]
     Active Substance: LEMBOREXANT
     Route: 048

REACTIONS (1)
  - Sleep talking [Unknown]

NARRATIVE: CASE EVENT DATE: 20220101
